FAERS Safety Report 18485916 (Version 2)
Quarter: 2020Q4

REPORT INFORMATION
  Report Type: Spontaneous
  Country: GB (occurrence: GB)
  Receive Date: 20201110
  Receipt Date: 20201222
  Transmission Date: 20210114
  Serious: Yes (Other)
  Sender: FDA-Public Use
  Company Number: GB-PFIZER INC-2020428647

PATIENT
  Age: 74 Year
  Sex: Female

DRUGS (9)
  1. DEXAMETHASONE SODIUM PHOSPHATE. [Suspect]
     Active Substance: DEXAMETHASONE SODIUM PHOSPHATE
     Dosage: UNK
     Route: 065
     Dates: start: 2017, end: 201810
  2. DOXORUBICIN HCL [Suspect]
     Active Substance: DOXORUBICIN HYDROCHLORIDE
     Dosage: UNK (DOSE REDUCED DUE TO AGE)
     Route: 065
  3. VINCRISTINE SULFATE. [Suspect]
     Active Substance: VINCRISTINE SULFATE
     Dosage: UNK (DOSE REDUCED DUE TO AGE)
     Route: 065
  4. CYCLOPHOSPHAMIDE. [Suspect]
     Active Substance: CYCLOPHOSPHAMIDE
     Indication: DIFFUSE LARGE B-CELL LYMPHOMA STAGE IV
     Dosage: UNK (DOSE REDUCED DUE TO AGE)
     Route: 065
  5. PREDNISOLONE. [Suspect]
     Active Substance: PREDNISOLONE
     Dosage: UNK (DOSE REDUCED DUE TO AGE)
     Route: 065
  6. RITUXIMAB. [Suspect]
     Active Substance: RITUXIMAB
     Indication: DIFFUSE LARGE B-CELL LYMPHOMA STAGE IV
     Dosage: UNK (DOSE REDUCED DUE TO AGE)
     Route: 065
  7. CISPLATIN. [Suspect]
     Active Substance: CISPLATIN
     Dosage: UNK
     Route: 065
     Dates: start: 2017, end: 201810
  8. RITUXIMAB. [Suspect]
     Active Substance: RITUXIMAB
     Indication: PALLIATIVE CARE
     Dosage: UNK
     Route: 065
     Dates: start: 2017, end: 201810
  9. GEMCITABINE HYDROCHLORIDE. [Suspect]
     Active Substance: GEMCITABINE HYDROCHLORIDE
     Indication: PALLIATIVE CARE
     Dosage: UNK
     Route: 065
     Dates: start: 2017, end: 201810

REACTIONS (1)
  - Drug intolerance [Unknown]
